FAERS Safety Report 16753854 (Version 2)
Quarter: 2019Q3

REPORT INFORMATION
  Report Type: Spontaneous
  Country: NL (occurrence: NL)
  Receive Date: 20190829
  Receipt Date: 20190904
  Transmission Date: 20191005
  Serious: Yes (Hospitalization)
  Sender: FDA-Public Use
  Company Number: NL-TERSERA THERAPEUTICS LLC-2019TRS001684

PATIENT

DRUGS (1)
  1. ZOLADEX [Suspect]
     Active Substance: GOSERELIN ACETATE
     Indication: PROSTATE CANCER
     Dosage: 1 DOSAGE FORM, EVERY THREE MONTHS
     Route: 058
     Dates: start: 20170901, end: 20190701

REACTIONS (4)
  - Fall [Recovered/Resolved]
  - Cognitive disorder [Recovered/Resolved]
  - Cerebral amyloid angiopathy [Recovered/Resolved]
  - Dementia [Recovered/Resolved]

NARRATIVE: CASE EVENT DATE: 20180201
